FAERS Safety Report 7765697-7 (Version None)
Quarter: 2011Q3

REPORT INFORMATION
  Report Type: 
  Country: None (occurrence: None)
  Receive Date: 20110921
  Receipt Date: 20110912
  Transmission Date: 20111222
  Serious: Yes (Hospitalization, Other)
  Sender: FDA-Public Use
  Company Number: US-CELGENEUS-163-21880-11091566

PATIENT
  Age: 63 Year
  Sex: Male

DRUGS (9)
  1. DOCUSATE SODIUM [Concomitant]
     Route: 065
  2. DECADRON [Suspect]
     Indication: MULTIPLE MYELOMA
     Route: 065
     Dates: start: 20110501
  3. GLUCOTROL [Concomitant]
     Route: 065
  4. UROCIT-K 10 [Concomitant]
     Route: 065
  5. LASIX [Concomitant]
     Route: 065
  6. REVLIMID [Suspect]
     Indication: MULTIPLE MYELOMA
     Dosage: 25 MILLIGRAM
     Route: 048
     Dates: start: 20110501, end: 20110701
  7. REVLIMID [Suspect]
     Dosage: 25 MILLIGRAM
     Route: 048
     Dates: start: 20110901
  8. LOPRESSOR [Concomitant]
     Route: 065
  9. COUMADIN [Concomitant]
     Route: 065

REACTIONS (4)
  - FEMUR FRACTURE [None]
  - DEEP VEIN THROMBOSIS [None]
  - METABOLIC ENCEPHALOPATHY [None]
  - PLATELET COUNT DECREASED [None]
